FAERS Safety Report 19758484 (Version 1)
Quarter: 2021Q3

REPORT INFORMATION
  Report Type: Spontaneous
  Country: PL (occurrence: PL)
  Receive Date: 20210828
  Receipt Date: 20210828
  Transmission Date: 20211014
  Serious: Yes (Other)
  Sender: FDA-Public Use
  Company Number: NVSC2021PL185454

PATIENT
  Age: 68 Year
  Sex: Female

DRUGS (6)
  1. DULOXETINE. [Interacting]
     Active Substance: DULOXETINE
     Indication: DEPRESSION
     Dosage: 60 MG, QD
     Route: 065
  2. ALPRAZOLAM. [Interacting]
     Active Substance: ALPRAZOLAM
     Indication: DEPRESSION
     Dosage: 0.5 MG, BID (1 MG PER DAY)
     Route: 065
  3. CIPROFLOXACIN. [Suspect]
     Active Substance: CIPROFLOXACIN
     Indication: ARTHRITIS INFECTIVE
     Dosage: 1000 MG, QD
     Route: 048
  4. METOPROLOL. [Interacting]
     Active Substance: METOPROLOL
     Indication: DEPRESSION
     Dosage: 100 MG, QD
     Route: 065
  5. CELECOXIB. [Interacting]
     Active Substance: CELECOXIB
     Indication: ARTHRITIS
     Dosage: 400 MG, QD
     Route: 065
  6. CIPROFLOXACIN. [Interacting]
     Active Substance: CIPROFLOXACIN
     Indication: ARTHRITIS

REACTIONS (8)
  - Hallucination, visual [Recovered/Resolved]
  - Eye pain [Recovered/Resolved]
  - Dyschromatopsia [Recovered/Resolved]
  - Headache [Unknown]
  - Hyperhidrosis [Recovered/Resolved]
  - Drug interaction [Unknown]
  - Excessive eye blinking [Unknown]
  - Thermal burns of eye [Recovered/Resolved]
